FAERS Safety Report 23401823 (Version 2)
Quarter: 2024Q1

REPORT INFORMATION
  Report Type: Report from Study
  Country: US (occurrence: US)
  Receive Date: 20240115
  Receipt Date: 20240208
  Transmission Date: 20240409
  Serious: Yes (Other)
  Sender: FDA-Public Use
  Company Number: US-UCBSA-2024001547

PATIENT
  Age: 1 Year
  Sex: Female
  Weight: 16.1 kg

DRUGS (7)
  1. FINTEPLA [Suspect]
     Active Substance: FENFLURAMINE
     Indication: Severe myoclonic epilepsy of infancy
     Dosage: TAKE 1.8 ML BY MOUTH IN THE MORNING, 1 ML WITH LUNCH, AND 1.8 ML IN THE EVENING, 3X/DAY (TID)
     Route: 048
     Dates: start: 20220720
  2. FINTEPLA [Suspect]
     Active Substance: FENFLURAMINE
     Dosage: 8.8 MILLIGRAM PER DAY
     Route: 048
  3. FINTEPLA [Suspect]
     Active Substance: FENFLURAMINE
     Dosage: 10.12 MILLIGRAM PER DAY
     Route: 048
  4. EPIDIOLEX [Concomitant]
     Active Substance: CANNABIDIOL
     Indication: Product used for unknown indication
     Dosage: 1.3 MILLILITER, 2X/DAY (BID) (130 MG TOTAL)
     Route: 048
  5. KLONOPIN [Concomitant]
     Active Substance: CLONAZEPAM
     Indication: Seizure
     Dosage: 1 DOSAGE FORM, 2X/DAY (BID) (IF NEEDED FOR SEIZURES)
     Route: 048
  6. VERSED [Concomitant]
     Active Substance: MIDAZOLAM HYDROCHLORIDE
     Indication: Seizure
     Dosage: 0.8 MILLILITER (4 MG TOTAL INTO AFFECTED NOSTRILS ONE TIME)
     Route: 045
  7. VALPROATE SODIUM [Concomitant]
     Active Substance: VALPROATE SODIUM
     Indication: Product used for unknown indication
     Dosage: UNK (TAKE 2 ML BY MOUTH IN THE MORNING, 1.5 ML MID DAY AND 1.5 ML AT NIGHT FOR 1 WEEK, THEN TAKE 2 M
     Route: 048

REACTIONS (2)
  - Left-to-right cardiac shunt [Unknown]
  - Off label use [Unknown]

NARRATIVE: CASE EVENT DATE: 20220720
